FAERS Safety Report 14752547 (Version 1)
Quarter: 2018Q2

REPORT INFORMATION
  Report Type: Spontaneous
  Country: US (occurrence: US)
  Receive Date: 20180412
  Receipt Date: 20180412
  Transmission Date: 20180711
  Serious: Yes (Disabling, Other)
  Sender: FDA-Public Use
  Company Number: US-REGENERON PHARMACEUTICALS, INC.-2018-20233

PATIENT

DRUGS (2)
  1. EYLEA [Suspect]
     Active Substance: AFLIBERCEPT
     Dosage: OS
     Route: 031
     Dates: start: 20180327, end: 20180327
  2. EYLEA [Suspect]
     Active Substance: AFLIBERCEPT
     Indication: PRODUCT USED FOR UNKNOWN INDICATION
     Dosage: UNK
     Route: 031

REACTIONS (6)
  - Blindness transient [Recovering/Resolving]
  - Eye haemorrhage [Unknown]
  - Eye inflammation [Recovering/Resolving]
  - Vitreous floaters [Unknown]
  - Eye infection [Unknown]
  - Vitreal cells [Unknown]

NARRATIVE: CASE EVENT DATE: 20180328
